FAERS Safety Report 9780370 (Version 4)
Quarter: 2014Q1

REPORT INFORMATION
  Report Type: Report from Study
  Country: CA (occurrence: CA)
  Receive Date: 20131224
  Receipt Date: 20140206
  Transmission Date: 20141002
  Serious: Yes (Other)
  Sender: FDA-Public Use
  Company Number: CA-ROCHE-1207729

PATIENT
  Age: 65 Year
  Sex: Female
  Weight: 56.7 kg

DRUGS (10)
  1. RITUXAN [Suspect]
     Indication: RHEUMATOID ARTHRITIS
     Route: 042
     Dates: start: 2009
  2. RITUXAN [Suspect]
     Dosage: LAST DOSE:10/APR/2013
     Route: 042
     Dates: start: 20120711
  3. DIPHENHYDRAMINE HCL [Concomitant]
     Route: 048
     Dates: start: 20120711
  4. ACETAMINOPHEN [Concomitant]
     Route: 048
     Dates: start: 20120711
  5. METHYLPREDNISOLONE [Concomitant]
     Route: 042
     Dates: start: 20120711
  6. NEXIUM [Concomitant]
     Route: 065
  7. SULINDAC [Concomitant]
     Route: 065
  8. PREDNISONE [Concomitant]
     Route: 065
  9. ACTONEL [Concomitant]
     Route: 065
  10. PREMARIN [Concomitant]
     Route: 065

REACTIONS (6)
  - Giardiasis [Recovering/Resolving]
  - Urinary tract infection [Recovered/Resolved]
  - Gastroenteritis viral [Recovered/Resolved]
  - Nausea [Recovered/Resolved]
  - Abdominal pain [Recovered/Resolved]
  - Weight decreased [Unknown]
